FAERS Safety Report 5085424-4 (Version None)
Quarter: 2006Q3

REPORT INFORMATION
  Report Type: 
  Country: None (occurrence: None)
  Receive Date: 20060817
  Receipt Date: 20060803
  Transmission Date: 20061208
  Serious: Yes (Death)
  Sender: FDA-Public Use
  Company Number: 2006096624

PATIENT
  Age: 71 Year
  Sex: Female

DRUGS (1)
  1. BEXTRA [Suspect]
     Indication: OSTEOARTHRITIS
     Dosage: 20 MG (20 MG, 1 IN 1 D), UNKNOWN
     Dates: start: 20040805, end: 20040928

REACTIONS (1)
  - CEREBROVASCULAR ACCIDENT [None]
